FAERS Safety Report 9599291 (Version 1)
Quarter: 2013Q4

REPORT INFORMATION
  Report Type: Spontaneous
  Country: US (occurrence: US)
  Receive Date: 20131004
  Receipt Date: 20131004
  Transmission Date: 20140711
  Serious: No
  Sender: FDA-Public Use
  Company Number: US-AMGEN-USASP2013028745

PATIENT
  Age: 65 Year
  Sex: Female
  Weight: 79.37 kg

DRUGS (7)
  1. ENBREL [Suspect]
     Indication: PRODUCT USED FOR UNKNOWN INDICATION
     Dosage: 25 MG, 2 TIMES/WK
  2. HYDROCHLOROTH [Concomitant]
     Dosage: 25 MG, UNK
  3. ARIMIDEX [Concomitant]
     Dosage: 1 MG, UNK
  4. METOPROLOL TARTRATE [Concomitant]
     Dosage: 25 MG, UNK
  5. CALCIUM D                          /00944201/ [Concomitant]
     Dosage: UNK
  6. MAGNESIUM [Concomitant]
     Dosage: 300 MG, UNK
  7. SIMVASTATIN [Concomitant]
     Dosage: 10 MG, UNK

REACTIONS (1)
  - Therapeutic response decreased [Unknown]
